FAERS Safety Report 14425813 (Version 1)
Quarter: 2018Q1

REPORT INFORMATION
  Report Type: Spontaneous
  Country: US (occurrence: US)
  Receive Date: 20180122
  Receipt Date: 20180122
  Transmission Date: 20180509
  Serious: No
  Sender: FDA-Public Use
  Company Number: None

PATIENT
  Age: 22 Year
  Sex: Female
  Weight: 85.05 kg

DRUGS (1)
  1. MIRENA [Suspect]
     Active Substance: LEVONORGESTREL
     Indication: CONTRACEPTION
     Dosage: ?          OTHER STRENGTH:MCG;QUANTITY:1 INTRAUTERINE;OTHER FREQUENCY:24 HOURS;?
     Route: 067

REACTIONS (3)
  - Ovarian cyst [None]
  - Weight increased [None]
  - Acne cystic [None]

NARRATIVE: CASE EVENT DATE: 20160201
